FAERS Safety Report 7004805-2 (Version None)
Quarter: 2010Q3

REPORT INFORMATION
  Report Type: 
  Country: None (occurrence: None)
  Receive Date: 20100921
  Receipt Date: 20091106
  Transmission Date: 20110219
  Serious: No
  Sender: FDA-Public Use
  Company Number: A0806340A

PATIENT
  Age: 60 Year
  Sex: Male

DRUGS (2)
  1. EPZICOM [Suspect]
     Indication: HIV INFECTION
     Dosage: 1TAB PER DAY
     Route: 048
     Dates: start: 20080601
  2. REYATAZ [Concomitant]

REACTIONS (8)
  - ABNORMAL FAECES [None]
  - DECREASED APPETITE [None]
  - FLATULENCE [None]
  - LYMPHADENOPATHY [None]
  - NAUSEA [None]
  - PRODUCT QUALITY ISSUE [None]
  - PYREXIA [None]
  - VIRAL INFECTION [None]
